FAERS Safety Report 8163529-9 (Version None)
Quarter: 2012Q1

REPORT INFORMATION
  Report Type: 
  Country: None (occurrence: None)
  Receive Date: 20120224
  Receipt Date: 20120216
  Transmission Date: 20120608
  Serious: Yes (Hospitalization)
  Sender: FDA-Public Use
  Company Number: PT-JNJFOC-20110811015

PATIENT
  Sex: Male
  Weight: 3.65 kg

DRUGS (5)
  1. DARUNAVIR ETHANOLATE [Suspect]
     Indication: FOETAL EXPOSURE DURING PREGNANCY
     Route: 064
     Dates: start: 20110214
  2. TRUVADA [Concomitant]
     Indication: FOETAL EXPOSURE DURING PREGNANCY
     Route: 064
     Dates: start: 20110214
  3. RALTEGRAVIR [Concomitant]
     Indication: FOETAL EXPOSURE DURING PREGNANCY
     Route: 064
     Dates: start: 20110214
  4. ZIDOVUDINE [Concomitant]
     Indication: FOETAL EXPOSURE DURING PREGNANCY
     Dates: start: 20110725, end: 20110725
  5. RITONAVIR [Concomitant]
     Indication: FOETAL EXPOSURE DURING PREGNANCY
     Route: 064
     Dates: start: 20110214

REACTIONS (2)
  - RESPIRATORY DISTRESS [None]
  - PNEUMONIA [None]
